FAERS Safety Report 17177223 (Version 1)
Quarter: 2019Q4

REPORT INFORMATION
  Report Type: Spontaneous
  Country: SE (occurrence: SE)
  Receive Date: 20191219
  Receipt Date: 20191219
  Transmission Date: 20200122
  Serious: Yes (Hospitalization)
  Sender: FDA-Public Use
  Company Number: SE-ASTRAZENECA-2019SF79866

PATIENT
  Age: 21 Year
  Sex: Female

DRUGS (7)
  1. ATARAX [Suspect]
     Active Substance: HYDROXYZINE HYDROCHLORIDE
     Dosage: 120.0MG UNKNOWN
     Route: 048
     Dates: start: 201904, end: 201904
  2. OMEPRAZOLE. [Suspect]
     Active Substance: OMEPRAZOLE
     Dosage: 140.0MG UNKNOWN
     Route: 048
     Dates: start: 201904, end: 201904
  3. ALVEDON [Suspect]
     Active Substance: ACETAMINOPHEN
     Dosage: 5.0G UNKNOWN
     Route: 048
     Dates: start: 201904, end: 201904
  4. ATENOLOL. [Suspect]
     Active Substance: ATENOLOL
     Dosage: 100.0MG UNKNOWN
     Route: 048
     Dates: start: 201904, end: 201904
  5. PROPAVAN [Suspect]
     Active Substance: PROPIOMAZINE
     Dosage: 1250.0MG UNKNOWN
     Route: 048
     Dates: start: 201904, end: 201904
  6. IPREN [Suspect]
     Active Substance: IBUPROFEN
     Dosage: 4.0G UNKNOWN
     Route: 048
     Dates: start: 201904, end: 201904
  7. OXYCODONE [Suspect]
     Active Substance: OXYCODONE
     Dosage: 15.0MG UNKNOWN
     Route: 048
     Dates: start: 201904, end: 201904

REACTIONS (3)
  - Intentional overdose [Unknown]
  - Intentional self-injury [Unknown]
  - Depressed level of consciousness [Unknown]

NARRATIVE: CASE EVENT DATE: 201904
